FAERS Safety Report 9788977 (Version 1)
Quarter: 2013Q4

REPORT INFORMATION
  Report Type: Spontaneous
  Country: US (occurrence: US)
  Receive Date: 20131230
  Receipt Date: 20131230
  Transmission Date: 20140711
  Serious: Yes (Hospitalization)
  Sender: FDA-Public Use
  Company Number: US-PFIZER INC-2013295666

PATIENT
  Age: 77 Year
  Sex: Female
  Weight: 80.73 kg

DRUGS (6)
  1. METHOTREXATE SODIUM [Suspect]
     Dosage: UNK
     Dates: end: 20130108
  2. PREDNISONE [Suspect]
     Indication: RHEUMATOID ARTHRITIS
     Dosage: UNK
  3. PREDNISONE [Suspect]
     Indication: CHONDROCALCINOSIS PYROPHOSPHATE
  4. LEFLUNOMIDE [Suspect]
     Indication: RHEUMATOID ARTHRITIS
     Dosage: UNK
     Dates: end: 20130108
  5. LEFLUNOMIDE [Suspect]
     Indication: CHONDROCALCINOSIS PYROPHOSPHATE
  6. TRAVATAN Z [Concomitant]
     Indication: GLAUCOMA
     Dosage: UNK

REACTIONS (4)
  - Pneumonia [Recovered/Resolved]
  - Rash [Recovered/Resolved]
  - Immune system disorder [Recovered/Resolved]
  - Malaise [Recovered/Resolved]
